FAERS Safety Report 15756408 (Version 1)
Quarter: 2018Q4

REPORT INFORMATION
  Report Type: Spontaneous
  Country: US (occurrence: US)
  Receive Date: 20181222
  Receipt Date: 20181222
  Transmission Date: 20190205
  Serious: No
  Sender: FDA-Public Use
  Company Number: None

PATIENT
  Age: 50 Year
  Sex: Female
  Weight: 58.5 kg

DRUGS (2)
  1. GENERIC OXYCODONE/ ACETAMINOPHEN 7.5/325 MG [Suspect]
     Active Substance: ACETAMINOPHEN\OXYCODONE HYDROCHLORIDE
     Indication: JOINT DISLOCATION
     Dosage: ?          QUANTITY:120 TABLET(S);?
     Route: 048
  2. GENERIC OXYCODONE/ ACETAMINOPHEN 7.5/325 MG [Suspect]
     Active Substance: ACETAMINOPHEN\OXYCODONE HYDROCHLORIDE
     Indication: ENDOMETRIOSIS
     Dosage: ?          QUANTITY:120 TABLET(S);?
     Route: 048

REACTIONS (5)
  - Migraine [None]
  - Drug ineffective [None]
  - Abdominal pain upper [None]
  - Throat irritation [None]
  - Product substitution issue [None]

NARRATIVE: CASE EVENT DATE: 20181222
